FAERS Safety Report 23776645 (Version 1)
Quarter: 2024Q2

REPORT INFORMATION
  Report Type: Spontaneous
  Country: GB (occurrence: GB)
  Receive Date: 20240424
  Receipt Date: 20240424
  Transmission Date: 20240716
  Serious: Yes (Hospitalization)
  Sender: FDA-Public Use
  Company Number: GB-CELLTRION INC.-2024GB003562

PATIENT

DRUGS (8)
  1. INFLIXIMAB [Suspect]
     Active Substance: INFLIXIMAB
     Indication: Crohn^s disease
     Dosage: 435 MG, 8 WEEKLY (STRENGTH: 5MG/KG), EXPDT=31-OCT-2026
     Route: 042
  2. INFLIXIMAB [Suspect]
     Active Substance: INFLIXIMAB
     Dosage: 435 MG, 8 WEEKLY (STRENGTH: 5MG/KG), EXPDT=31-OCT-2026
     Route: 042
  3. SODIUM CHLORIDE [Suspect]
     Active Substance: SODIUM CHLORIDE
     Indication: Medication dilution
     Dosage: AT AN UNSPECIFIED DOSE 8 WEEKLY
     Route: 042
  4. SODIUM CHLORIDE [Suspect]
     Active Substance: SODIUM CHLORIDE
     Dosage: AT AN UNSPECIFIED DOSE 8 WEEKLY
     Route: 042
  5. WATER [Suspect]
     Active Substance: WATER
     Indication: Medication dilution
     Dosage: AT AN UNSPECIFIED DOSE 8 WEEKLY
     Route: 042
  6. WATER [Suspect]
     Active Substance: WATER
     Dosage: AT AN UNSPECIFIED DOSE 8 WEEKLY
     Route: 042
  7. PENICILLIN G POTASSIUM [Suspect]
     Active Substance: PENICILLIN G POTASSIUM
     Indication: Product used for unknown indication
     Dosage: UNK
     Route: 065
  8. PENICILLIN G POTASSIUM [Suspect]
     Active Substance: PENICILLIN G POTASSIUM
     Indication: Malaise

REACTIONS (13)
  - Stress [Unknown]
  - Poor venous access [Unknown]
  - Psoriasis [Unknown]
  - Rash [Recovered/Resolved]
  - Weight decreased [Unknown]
  - Fatigue [Unknown]
  - Rash erythematous [Recovered/Resolved]
  - Abdominal pain upper [Recovered/Resolved]
  - Malaise [Unknown]
  - Adverse drug reaction [Unknown]
  - Furuncle [Unknown]
  - Alopecia [Unknown]
  - Intentional dose omission [Unknown]
